FAERS Safety Report 5103416-3 (Version None)
Quarter: 2006Q3

REPORT INFORMATION
  Report Type: 
  Country: None (occurrence: None)
  Receive Date: 20060913
  Receipt Date: 20060313
  Transmission Date: 20061208
  Serious: Yes (Other)
  Sender: FDA-Public Use
  Company Number: GBWYE468714MAR06

PATIENT
  Sex: Female
  Weight: 61.2 kg

DRUGS (7)
  1. ENBREL [Suspect]
     Indication: DRUG USE FOR UNKNOWN INDICATION
     Dosage: UNKNOWN
     Route: 058
     Dates: start: 20060101
  2. GLUCOSAMINE [Concomitant]
     Dosage: UNSPECIFIED DOSE TWICE DAILY
  3. PREDNISOLONE [Concomitant]
     Dosage: UNKNOWN
  4. FOSAMAX [Concomitant]
  5. MULTIVITAMIN/MULTIMINERAL [Concomitant]
     Dosage: UNKNOWN
  6. COD-LIVER OIL [Concomitant]
     Dosage: UNKNOWN
  7. UNSPECIFIED VITAMINS [Concomitant]

REACTIONS (4)
  - EXOPHTHALMOS [None]
  - NASOPHARYNGITIS [None]
  - OCULAR HYPERAEMIA [None]
  - SELF-MEDICATION [None]
